FAERS Safety Report 23409562 (Version 1)
Quarter: 2024Q1

REPORT INFORMATION
  Report Type: Spontaneous
  Country: ES (occurrence: ES)
  Receive Date: 20240117
  Receipt Date: 20240117
  Transmission Date: 20240410
  Serious: Yes (Hospitalization, Other)
  Sender: FDA-Public Use
  Company Number: ES-SZ09-GXKR2009ES05065

PATIENT
  Age: 54 Year
  Sex: Male

DRUGS (23)
  1. SIMVASTATIN [Interacting]
     Active Substance: SIMVASTATIN
     Indication: Myocardial infarction
     Dosage: 40 MG/DAY
     Route: 065
     Dates: start: 200406
  2. CYCLOSPORINE [Interacting]
     Active Substance: CYCLOSPORINE
     Indication: Prophylaxis against graft versus host disease
     Dosage: 0.5 UG, Q12H FROM DAY 7 TO DAY 3 OF HPT
     Route: 042
  3. CYCLOSPORINE [Interacting]
     Active Substance: CYCLOSPORINE
     Dosage: 1.5 MG, Q12H FROM DAY 2 OF HPT
     Route: 042
  4. RISPERIDONE [Interacting]
     Active Substance: RISPERIDONE
     Indication: Psychotic disorder
     Dosage: 1 MG/DAY
     Route: 048
  5. ACYCLOVIR [Suspect]
     Active Substance: ACYCLOVIR
     Indication: Infection prophylaxis
     Dosage: 250 MILLIGRAM, TWO TIMES A DAY
     Route: 042
     Dates: start: 200701
  6. VORICONAZOLE [Suspect]
     Active Substance: VORICONAZOLE
     Indication: Infection prophylaxis
     Dosage: 200 MG, Q12H
     Route: 048
  7. VORICONAZOLE [Suspect]
     Active Substance: VORICONAZOLE
     Dosage: 200 MILLIGRAM, TWO TIMES A DAY
     Route: 048
     Dates: start: 200701
  8. ATENOLOL [Concomitant]
     Active Substance: ATENOLOL
     Indication: Myocardial infarction
     Dosage: 25 MG, QD
     Route: 065
     Dates: start: 200406
  9. ENALAPRIL [Concomitant]
     Active Substance: ENALAPRIL
     Indication: Myocardial infarction
     Dosage: 5 MG, DAY
     Route: 065
     Dates: start: 200406
  10. METHOTREXATE [Concomitant]
     Active Substance: METHOTREXATE
     Indication: Prophylaxis against graft versus host disease
     Dosage: UNK (FROM DAY +1 OF HPT)
     Route: 042
  11. IDARUBICIN [Concomitant]
     Active Substance: IDARUBICIN
     Indication: Acute myeloid leukaemia
     Dosage: 12 MG/M2, ON DAYS 1,3 AND 5
     Route: 042
     Dates: start: 200609
  12. CYTARABINE [Concomitant]
     Active Substance: CYTARABINE
     Indication: Acute myeloid leukaemia
     Dosage: 500 MG/M2, Q12H ON DAYS 1,3,5,7
     Route: 042
     Dates: start: 200609
  13. CYTARABINE [Concomitant]
     Active Substance: CYTARABINE
     Dosage: 500 MG/M2, Q12H ON DAYS 1-6
     Route: 065
     Dates: start: 200611
  14. ETOPOSIDE [Concomitant]
     Active Substance: ETOPOSIDE
     Indication: Acute myeloid leukaemia
     Dosage: 100 MG/M2, ON DAYS 1-3
     Route: 042
     Dates: start: 200609
  15. MITOXANTRONE [Concomitant]
     Active Substance: MITOXANTRONE HYDROCHLORIDE
     Indication: Product used for unknown indication
     Dosage: 12 MILLIGRAM/SQ. METER
     Route: 042
  16. PENTAMIDINE [Concomitant]
     Active Substance: PENTAMIDINE
     Indication: Infection prophylaxis
     Dosage: 300 MG, QW4
  17. FLUDARABINE [Concomitant]
     Active Substance: FLUDARABINE PHOSPHATE
     Indication: Product used for unknown indication
     Dosage: 30 MILLIGRAM/SQ. METER, ONCE A DAY
     Route: 042
  18. BUSULFAN [Concomitant]
     Active Substance: BUSULFAN
     Indication: Product used for unknown indication
     Dosage: 1 MG/KG, Q6H ON DAYS 4 TO 6
     Route: 048
  19. BUSULFAN [Concomitant]
     Active Substance: BUSULFAN
     Dosage: 30 MG/M2, QD
     Route: 048
  20. MEROPENEM [Concomitant]
     Active Substance: MEROPENEM
     Indication: Product used for unknown indication
     Dosage: 1 G, Q8H
     Route: 042
  21. MEROPENEM [Concomitant]
     Active Substance: MEROPENEM
     Dosage: 1 G, QD
     Route: 065
  22. TEICOPLANIN [Concomitant]
     Active Substance: TEICOPLANIN
     Indication: Product used for unknown indication
     Dosage: 400 MG, Q12H
     Route: 042
  23. TEICOPLANIN [Concomitant]
     Active Substance: TEICOPLANIN
     Dosage: 400 MG, QD
     Route: 065

REACTIONS (5)
  - Rhabdomyolysis [Recovered/Resolved]
  - Drug interaction [Recovered/Resolved]
  - Confusional state [Recovered/Resolved]
  - Hallucinations, mixed [Unknown]
  - Contraindicated product administered [Unknown]
